FAERS Safety Report 12445778 (Version 1)
Quarter: 2016Q2

REPORT INFORMATION
  Report Type: Spontaneous
  Country: US (occurrence: US)
  Receive Date: 20160608
  Receipt Date: 20160608
  Transmission Date: 20160815
  Serious: No
  Sender: FDA-Public Use
  Company Number: US-JNJFOC-20160515742

PATIENT
  Age: 80 Year
  Sex: Female
  Weight: 46.27 kg

DRUGS (2)
  1. TYLENOL EXTRA STRENGTH [Suspect]
     Active Substance: ACETAMINOPHEN
     Indication: PAIN
     Dosage: EVERY 5 HOURS
     Route: 048
     Dates: start: 20160509, end: 20160512
  2. ANTITHYROID PREPARATIONS [Concomitant]
     Indication: THYROID DISORDER
     Route: 065

REACTIONS (5)
  - Incorrect dose administered [Unknown]
  - Hypersomnia [Not Recovered/Not Resolved]
  - Inappropriate schedule of drug administration [Unknown]
  - Abdominal discomfort [Not Recovered/Not Resolved]
  - Pruritus [Not Recovered/Not Resolved]

NARRATIVE: CASE EVENT DATE: 20160509
